FAERS Safety Report 8848157 (Version 4)
Quarter: 2013Q3

REPORT INFORMATION
  Report Type: Spontaneous
  Country: JP (occurrence: JP)
  Receive Date: 20121018
  Receipt Date: 20130715
  Transmission Date: 20140515
  Serious: Yes (Life-Threatening, Hospitalization)
  Sender: FDA-Public Use
  Company Number: JP-PFIZER INC-2012257557

PATIENT
  Age: 53 Year
  Sex: Male

DRUGS (8)
  1. ANCARON [Suspect]
     Indication: ATRIAL FLUTTER
     Dosage: UNK
     Route: 048
     Dates: start: 20121008, end: 20121008
  2. ANCARON [Suspect]
     Indication: ATRIAL FIBRILLATION
  3. ANCARON [Suspect]
     Indication: ATRIAL FIBRILLATION
     Dosage: 33 ML/HR (1.50 MG/ML)
     Route: 042
     Dates: start: 20121007, end: 20121007
  4. ANCARON [Suspect]
     Indication: ATRIAL FLUTTER
     Dosage: 17 ML/HR (1.50 MG/ML)
     Route: 042
     Dates: start: 20121007, end: 20121009
  5. ARTIST [Concomitant]
     Indication: CARDIAC FAILURE
     Dosage: UNK
  6. JANUVIA [Concomitant]
     Indication: DIABETES MELLITUS
     Dosage: UNK
  7. FEBURIC [Concomitant]
     Dosage: UNK
     Dates: start: 20121006, end: 20121009
  8. WARFARIN [Concomitant]
     Indication: ANTICOAGULANT THERAPY
     Dosage: UNK
     Dates: start: 20121006

REACTIONS (2)
  - Renal failure acute [Recovered/Resolved]
  - Acute hepatic failure [Recovered/Resolved]
